FAERS Safety Report 18787516 (Version 5)
Quarter: 2021Q1

REPORT INFORMATION
  Report Type: Spontaneous
  Country: FR (occurrence: FR)
  Receive Date: 20210126
  Receipt Date: 20210212
  Transmission Date: 20210419
  Serious: Yes (Life-Threatening, Hospitalization, Other)
  Sender: FDA-Public Use
  Company Number: FR-PFIZER INC-2021026841

PATIENT
  Age: 54 Year
  Sex: Female
  Weight: 38 kg

DRUGS (11)
  1. VENLAFAXINE HCL [Suspect]
     Active Substance: VENLAFAXINE HYDROCHLORIDE
     Dosage: 75 MG 3?0?0
     Route: 048
  2. OXAZEPAM. [Suspect]
     Active Substance: OXAZEPAM
     Dosage: 50 MG
     Route: 048
  3. SERESTA [Suspect]
     Active Substance: OXAZEPAM
     Indication: INSOMNIA
  4. ACTIVATED CHARCOAL. [Suspect]
     Active Substance: ACTIVATED CHARCOAL
     Dosage: 25 G, EVERY 4 HOURS
  5. ACTIVATED CHARCOAL. [Suspect]
     Active Substance: ACTIVATED CHARCOAL
     Indication: BEZOAR
     Dosage: 50 G, LOADING DOSE
  6. SERESTA [Suspect]
     Active Substance: OXAZEPAM
     Indication: SUICIDE ATTEMPT
     Dosage: 10 MG, PRESCRIBED FOR 1 TO 4 TIMES A DAY
     Route: 048
  7. CIRCADIN [Concomitant]
     Active Substance: MELATONIN
     Dosage: 0 ? 0 ? 1
  8. VENLAFAXINE HCL [Suspect]
     Active Substance: VENLAFAXINE HYDROCHLORIDE
     Dosage: UNK
     Route: 048
     Dates: start: 20190902, end: 20190902
  9. PREGABALIN. [Suspect]
     Active Substance: PREGABALIN
     Dosage: 2 ? 2 ? 2 ? 2
     Route: 048
  10. SERESTA [Suspect]
     Active Substance: OXAZEPAM
     Indication: ANXIETY
     Dosage: 50 MG, PRESCRIBED DOSE AT 1 TO 3 TIMES A DAY
     Route: 048
  11. LORMETAZEPAM [Concomitant]
     Active Substance: LORMETAZEPAM
     Dosage: 0 ? 0 ? 1

REACTIONS (12)
  - Loss of consciousness [Recovered/Resolved]
  - Toxicity to various agents [Recovered/Resolved]
  - Coma [Recovered/Resolved]
  - Suicide attempt [Unknown]
  - Electrocardiogram QT prolonged [Recovered/Resolved]
  - Sinus bradycardia [Recovered/Resolved]
  - Dizziness [Recovered/Resolved]
  - Bezoar [Recovered/Resolved]
  - Lactic acidosis [Recovered/Resolved]
  - Drug level increased [Recovered/Resolved]
  - Intentional overdose [Recovered/Resolved]
  - Cardiotoxicity [Recovered/Resolved]

NARRATIVE: CASE EVENT DATE: 20190902
